FAERS Safety Report 6893545-6 (Version None)
Quarter: 2010Q3

REPORT INFORMATION
  Report Type: 
  Country: None (occurrence: None)
  Receive Date: 20100731
  Receipt Date: 20091008
  Transmission Date: 20110219
  Serious: No
  Sender: FDA-Public Use
  Company Number: US-PFIZER INC-2009224113

PATIENT
  Sex: Female
  Weight: 72.562 kg

DRUGS (2)
  1. NEURONTIN [Suspect]
     Indication: COUGH
     Dosage: 600 MG, 1X/DAY
  2. NEXIUM [Concomitant]
     Dosage: UNK

REACTIONS (1)
  - MEMORY IMPAIRMENT [None]
